FAERS Safety Report 16921381 (Version 1)
Quarter: 2019Q4

REPORT INFORMATION
  Report Type: Spontaneous
  Country: CN (occurrence: CN)
  Receive Date: 20191015
  Receipt Date: 20191015
  Transmission Date: 20200122
  Serious: Yes (Other)
  Sender: FDA-Public Use
  Company Number: CN-SA-2019SA281604

PATIENT
  Age: 81 Year
  Sex: Female

DRUGS (10)
  1. ISOSORBIDE MONONITRATE. [Concomitant]
     Active Substance: ISOSORBIDE MONONITRATE
     Indication: ANGINA UNSTABLE
  2. TRIMETAZIDINE DIHYDROCHLORIDE [Concomitant]
     Active Substance: TRIMETAZIDINE DIHYDROCHLORIDE
     Indication: ANGINA UNSTABLE
  3. PLAVIX [Suspect]
     Active Substance: CLOPIDOGREL BISULFATE
     Indication: ACUTE CORONARY SYNDROME
     Dosage: UNK
     Dates: start: 20181006, end: 20181011
  4. ASPIRIN [ACETYLSALICYLIC ACID] [Concomitant]
     Active Substance: ASPIRIN
     Indication: ANGINA UNSTABLE
  5. TRIMETAZIDINE DIHYDROCHLORIDE [Concomitant]
     Active Substance: TRIMETAZIDINE DIHYDROCHLORIDE
     Indication: ACUTE CORONARY SYNDROME
     Dosage: UNK
     Dates: start: 20181006, end: 20181011
  6. ISOSORBIDE MONONITRATE. [Concomitant]
     Active Substance: ISOSORBIDE MONONITRATE
     Indication: ACUTE CORONARY SYNDROME
     Dosage: UNK
     Dates: start: 20181006, end: 20181011
  7. PLAVIX [Suspect]
     Active Substance: CLOPIDOGREL BISULFATE
     Indication: ANGINA UNSTABLE
     Dosage: UNK
     Dates: start: 20181115, end: 20181115
  8. METOPROLOL SUCCINATE. [Concomitant]
     Active Substance: METOPROLOL SUCCINATE
     Indication: ACUTE CORONARY SYNDROME
     Dosage: UNK
     Dates: start: 20181006, end: 20181011
  9. ASPIRIN [ACETYLSALICYLIC ACID] [Concomitant]
     Active Substance: ASPIRIN
     Indication: ACUTE CORONARY SYNDROME
     Dosage: UNK
     Dates: start: 20181006, end: 20181011
  10. METOPROLOL SUCCINATE. [Concomitant]
     Active Substance: METOPROLOL SUCCINATE
     Indication: ANGINA UNSTABLE

REACTIONS (7)
  - Condition aggravated [Recovered/Resolved]
  - Rash [Recovered/Resolved]
  - Skin plaque [Recovered/Resolved]
  - Skin discolouration [Recovered/Resolved]
  - Epidermolysis bullosa [Recovered/Resolved]
  - Erythema [Recovered/Resolved]
  - Pruritus [Recovered/Resolved]

NARRATIVE: CASE EVENT DATE: 20181007
